FAERS Safety Report 4275843-8 (Version None)
Quarter: 2004Q1

REPORT INFORMATION
  Report Type: 
  Country: None (occurrence: None)
  Receive Date: 20040121
  Receipt Date: 20030113
  Transmission Date: 20041129
  Serious: No
  Sender: FDA-Public Use
  Company Number: US-GLAXOSMITHKLINE-A0392090A

PATIENT
  Age: 77 Year
  Sex: Male

DRUGS (8)
  1. VALTREX [Suspect]
     Indication: HERPES ZOSTER
     Dosage: 500MG TWICE PER DAY
     Route: 048
     Dates: start: 20020109
  2. HYDRODIURIL [Concomitant]
  3. PROSCAR [Concomitant]
  4. ASPIRIN [Concomitant]
  5. GARLIC [Concomitant]
  6. MULTI-VITAMIN [Concomitant]
  7. FLAX SEED OIL [Concomitant]
  8. GLUCOSAMINE [Concomitant]

REACTIONS (5)
  - ABDOMINAL PAIN UPPER [None]
  - DIZZINESS [None]
  - GASTROINTESTINAL DISORDER [None]
  - HEADACHE [None]
  - PAIN [None]
